FAERS Safety Report 7465966-4 (Version None)
Quarter: 2011Q2

REPORT INFORMATION
  Report Type: 
  Country: None (occurrence: None)
  Receive Date: 20110509
  Receipt Date: 20110426
  Transmission Date: 20111010
  Serious: Yes (Other)
  Sender: FDA-Public Use
  Company Number: DE-JNJFOC-20110107373

PATIENT
  Sex: Male
  Weight: 100 kg

DRUGS (10)
  1. PALEXIA [Suspect]
     Indication: PAIN MANAGEMENT
     Dosage: DOSE: 100MG, 2 IN 1 DAY.
     Route: 048
  2. LAXATIVES [Concomitant]
     Route: 065
  3. MIRTAZAPIN [Concomitant]
     Route: 065
  4. LYRICA [Suspect]
     Indication: PAIN MANAGEMENT
     Route: 065
  5. LYRICA [Suspect]
     Route: 065
  6. NSAID [Concomitant]
     Route: 065
  7. METAMIZOLE [Concomitant]
     Route: 065
  8. NALOXONE HYDROCHLORIDE W/TILIDINE HYDROCHLO. [Concomitant]
     Route: 065
  9. PALEXIA [Suspect]
     Indication: NEURALGIA
     Dosage: DOSE: 100MG, 2 IN 1 DAY.
     Route: 048
  10. TRAMADOL HCL [Concomitant]
     Route: 065

REACTIONS (1)
  - URINARY RETENTION [None]
